FAERS Safety Report 18647584 (Version 1)
Quarter: 2020Q4

REPORT INFORMATION
  Report Type: Spontaneous
  Country: US (occurrence: US)
  Receive Date: 20201222
  Receipt Date: 20201222
  Transmission Date: 20210114
  Serious: No
  Sender: FDA-Public Use
  Company Number: US-RECKITT BENCKISER HEALTHCARE INT LIMITED-RB-81517-2020

PATIENT
  Age: 77 Year
  Sex: Female

DRUGS (4)
  1. SERTRALINE [Concomitant]
     Active Substance: SERTRALINE HYDROCHLORIDE
     Indication: PRODUCT USED FOR UNKNOWN INDICATION
     Dosage: UNK
     Route: 065
  2. DELSYM [Suspect]
     Active Substance: DEXTROMETHORPHAN
     Indication: NASOPHARYNGITIS
     Dosage: 20 MILLILITER AT 3 PM AND ANOTHER ONE AT 7 PM
     Route: 065
     Dates: start: 20191228
  3. DELSYM [Suspect]
     Active Substance: DEXTROMETHORPHAN
     Indication: COUGH
  4. DELSYM [Suspect]
     Active Substance: DEXTROMETHORPHAN
     Indication: NASAL CONGESTION

REACTIONS (2)
  - Dizziness [Unknown]
  - Inappropriate schedule of product administration [Unknown]
